FAERS Safety Report 16849353 (Version 2)
Quarter: 2020Q3

REPORT INFORMATION
  Report Type: Spontaneous
  Country: US (occurrence: US)
  Receive Date: 20190925
  Receipt Date: 20200717
  Transmission Date: 20201102
  Serious: Yes (Other)
  Sender: FDA-Public Use
  Company Number: US-GILEAD-2019-0429689

PATIENT
  Sex: Female
  Weight: 62.13 kg

DRUGS (25)
  1. MAPAP [Concomitant]
     Active Substance: ACETAMINOPHEN
  2. SENNA LAXATIVE [Concomitant]
     Active Substance: SENNOSIDES
  3. ATRIPLA [Suspect]
     Active Substance: EFAVIRENZ\EMTRICITABINE\TENOFOVIR DISOPROXIL FUMARATE
     Indication: HIV INFECTION
     Dosage: UNK
     Route: 048
     Dates: start: 2004
  4. ISENTRESS [Concomitant]
     Active Substance: RALTEGRAVIR POTASSIUM
  5. IBUPROFEN. [Concomitant]
     Active Substance: IBUPROFEN
  6. TRADJENTA [Concomitant]
     Active Substance: LINAGLIPTIN
  7. TRAMADOL. [Concomitant]
     Active Substance: TRAMADOL
  8. ATRIPLA [Suspect]
     Active Substance: EFAVIRENZ\EMTRICITABINE\TENOFOVIR DISOPROXIL FUMARATE
     Dosage: UNK
     Route: 065
     Dates: start: 20100301, end: 201408
  9. DESCOVY [Concomitant]
     Active Substance: EMTRICITABINE\TENOFOVIR ALAFENAMIDE FUMARATE
  10. ASPIRIN (E.C.) [Concomitant]
     Active Substance: ASPIRIN
  11. NATEGLINIDE. [Concomitant]
     Active Substance: NATEGLINIDE
  12. COMPLERA [Suspect]
     Active Substance: EMTRICITABINE\RILPIVIRINE HYDROCHLORIDE\TENOFOVIR DISOPROXIL FUMARATE
     Indication: HIV INFECTION
     Dosage: UNK
     Route: 048
     Dates: start: 2004
  13. AMLODIPINE [Concomitant]
     Active Substance: AMLODIPINE BESYLATE
  14. ATORVASTATIN [Concomitant]
     Active Substance: ATORVASTATIN
  15. TRESIBA [Concomitant]
     Active Substance: INSULIN DEGLUDEC
  16. VITAMIN D NOS [Concomitant]
     Active Substance: VITAMIN D NOS
  17. TRUVADA [Suspect]
     Active Substance: EMTRICITABINE\TENOFOVIR DISOPROXIL FUMARATE
     Indication: HIV INFECTION
     Dosage: UNK
     Route: 048
     Dates: start: 2004
  18. COMPLERA [Suspect]
     Active Substance: EMTRICITABINE\RILPIVIRINE HYDROCHLORIDE\TENOFOVIR DISOPROXIL FUMARATE
     Dosage: UNK
     Route: 065
     Dates: start: 201410, end: 2016
  19. ENALAPRIL MALEATE. [Concomitant]
     Active Substance: ENALAPRIL MALEATE
  20. EPIVIR [Concomitant]
     Active Substance: LAMIVUDINE
  21. THERA?M [Concomitant]
  22. EDURANT [Concomitant]
     Active Substance: RILPIVIRINE HYDROCHLORIDE
  23. CALCIUM + VITAMIN D [CALCIUM LACTATE;CALCIUM PHOSPHATE;COLECALCIFEROL] [Concomitant]
  24. NYSTATIN. [Concomitant]
     Active Substance: NYSTATIN
  25. VERAMYST [Concomitant]
     Active Substance: FLUTICASONE FUROATE

REACTIONS (8)
  - Chronic kidney disease [Not Recovered/Not Resolved]
  - Pain [Not Recovered/Not Resolved]
  - Anhedonia [Not Recovered/Not Resolved]
  - Anxiety [Not Recovered/Not Resolved]
  - Emotional distress [Not Recovered/Not Resolved]
  - Osteoporosis [Not Recovered/Not Resolved]
  - Bone density decreased [Not Recovered/Not Resolved]
  - Economic problem [Not Recovered/Not Resolved]

NARRATIVE: CASE EVENT DATE: 2017
